FAERS Safety Report 18486564 (Version 1)
Quarter: 2020Q4

REPORT INFORMATION
  Report Type: Spontaneous
  Country: US (occurrence: US)
  Receive Date: 20201110
  Receipt Date: 20201110
  Transmission Date: 20210114
  Serious: No
  Sender: FDA-Public Use
  Company Number: US-PFIZER INC-2020409137

PATIENT
  Age: 74 Year
  Sex: Female

DRUGS (2)
  1. METHOTREXATE SODIUM. [Suspect]
     Active Substance: METHOTREXATE SODIUM
     Indication: RHEUMATOID FACTOR
     Dosage: UNK
  2. ENBREL [Concomitant]
     Active Substance: ETANERCEPT
     Dosage: UNK

REACTIONS (3)
  - Nausea [Unknown]
  - Diarrhoea [Unknown]
  - Drug ineffective [Unknown]
